FAERS Safety Report 25077167 (Version 1)
Quarter: 2025Q1

REPORT INFORMATION
  Report Type: Spontaneous
  Country: GB (occurrence: GB)
  Receive Date: 20250314
  Receipt Date: 20250314
  Transmission Date: 20250409
  Serious: Yes (Death)
  Sender: BOEHRINGER INGELHEIM
  Company Number: GB-BoehringerIngelheim-2025-BI-007805

PATIENT
  Age: 68 Year
  Sex: Male

DRUGS (1)
  1. NINTEDANIB [Suspect]
     Active Substance: NINTEDANIB
     Indication: Fibrosis
     Dosage: NASOGASTRIC (NG),

REACTIONS (5)
  - Pneumonitis [Fatal]
  - Progressive massive fibrosis [Fatal]
  - Interstitial lung disease [Fatal]
  - Infection [Fatal]
  - Product use issue [Unknown]
